FAERS Safety Report 10459197 (Version 1)
Quarter: 2014Q3

REPORT INFORMATION
  Report Type: Spontaneous
  Country: JP (occurrence: JP)
  Receive Date: 20140917
  Receipt Date: 20140917
  Transmission Date: 20150326
  Serious: Yes (Death, Other)
  Sender: FDA-Public Use
  Company Number: JP-TEVA-508394ISR

PATIENT
  Age: 66 Year
  Sex: Male

DRUGS (4)
  1. PREDNISOLONE. [Suspect]
     Active Substance: PREDNISOLONE
     Indication: PLEURISY
     Dosage: 30MG/DAY
     Route: 065
  2. PREDNISOLONE. [Suspect]
     Active Substance: PREDNISOLONE
     Indication: MYOSITIS
     Dosage: 20MG/DAY (0.4MG/KG) FOR 10 DAYS THEN INCREASED
     Route: 065
  3. PREDNISOLONE. [Suspect]
     Active Substance: PREDNISOLONE
     Indication: MYOSITIS
     Dosage: 30MG/DAY
     Route: 065
  4. PREDNISOLONE. [Suspect]
     Active Substance: PREDNISOLONE
     Indication: PLEURISY
     Dosage: 20MG/DAY (0.4MG/KG) FOR 10 DAYS THEN INCREASED
     Route: 065

REACTIONS (3)
  - Thrombotic microangiopathy [Recovering/Resolving]
  - Pneumonia aspiration [Fatal]
  - Scleroderma renal crisis [Not Recovered/Not Resolved]
